FAERS Safety Report 4673405-1 (Version None)
Quarter: 2005Q2

REPORT INFORMATION
  Report Type: 
  Country: None (occurrence: None)
  Receive Date: 20050523
  Receipt Date: 20050512
  Transmission Date: 20051028
  Serious: Yes (Life-Threatening, Hospitalization, Other)
  Sender: FDA-Public Use
  Company Number: 2005062537

PATIENT
  Age: 66 Year
  Sex: Male
  Weight: 52 kg

DRUGS (15)
  1. INSPRA [Suspect]
     Indication: CARDIAC FAILURE
     Dosage: 25 MG (25 MG, 1 IN 1 D), ORAL
     Route: 048
     Dates: start: 20041210, end: 20050101
  2. DIGOXIN [Concomitant]
  3. DIURAL (FUROSEMIDE) [Concomitant]
  4. TRIATEC 9RAMIPRIL) [Concomitant]
  5. TRENTAL ^ALBERT-ROUSSEL^ (PENTOXIFLYLLINE) [Concomitant]
  6. INSULARTARD (INSULIN HUMAN INJECTION, ISOPHANE) [Concomitant]
  7. ATORVASTATIN CALCIUM [Concomitant]
  8. HJERTEMAGNYL (ACETYLSALICYLIC ACID) [Concomitant]
  9. PINEX (PARACETAMOL) [Concomitant]
  10. NITROMEX (GLYCERYL TRINITRATE) [Concomitant]
  11. CARDOPAX - SLOW RELEASE (ISOSRBIDE DINITRATE) [Concomitant]
  12. DIMITONE 9CARVEDILOL) [Concomitant]
  13. LACTULOSE [Concomitant]
  14. DOLOL (TRAMADOL) [Concomitant]
  15. IMOVANE (ZOPICLONE) [Concomitant]

REACTIONS (5)
  - CHOLESTASIS [None]
  - DEHYDRATION [None]
  - GENERAL PHYSICAL HEALTH DETERIORATION [None]
  - HEPATIC FAILURE [None]
  - HEPATITIS [None]
